FAERS Safety Report 7492624-2 (Version None)
Quarter: 2011Q2

REPORT INFORMATION
  Report Type: 
  Country: None (occurrence: None)
  Receive Date: 20110519
  Receipt Date: 20110509
  Transmission Date: 20111010
  Serious: Yes (Hospitalization)
  Sender: FDA-Public Use
  Company Number: ES-ELI_LILLY_AND_COMPANY-ES201105002318

PATIENT
  Sex: Female
  Weight: 57 kg

DRUGS (3)
  1. NATECAL D [Concomitant]
     Indication: OSTEOPOROSIS
     Dosage: UNK, BID
     Route: 048
  2. FORTEO [Suspect]
     Indication: OSTEOPOROSIS
     Dosage: 20 UG, QD
     Route: 058
     Dates: start: 20100320, end: 20110401
  3. CLAVERSAL [Concomitant]
     Indication: COLITIS ULCERATIVE
     Dosage: UNK, TID
     Route: 048

REACTIONS (1)
  - INVESTIGATION ABNORMAL [None]
